FAERS Safety Report 23176238 (Version 1)
Quarter: 2023Q4

REPORT INFORMATION
  Report Type: Spontaneous
  Country: UA (occurrence: UA)
  Receive Date: 20231113
  Receipt Date: 20231113
  Transmission Date: 20240109
  Serious: Yes (Death, Other)
  Sender: FDA-Public Use
  Company Number: UA-SA-SAC20231101000483

PATIENT
  Sex: Female

DRUGS (1)
  1. CLOPIDOGREL BESILATE [Suspect]
     Active Substance: CLOPIDOGREL BESILATE
     Dosage: UNK (0.75 AND 0.37 TERM OF USE: FROM 10 DAYS TO 20 DAYS.)

REACTIONS (1)
  - Cardiovascular insufficiency [Fatal]
